FAERS Safety Report 9738384 (Version 1)
Quarter: 2013Q4

REPORT INFORMATION
  Report Type: Report from Study
  Country: US (occurrence: US)
  Receive Date: 20131208
  Receipt Date: 20131208
  Transmission Date: 20140711
  Serious: Yes (Other)
  Sender: FDA-Public Use
  Company Number: US-ROCHE-1315224

PATIENT
  Age: 93 Year
  Sex: Female

DRUGS (3)
  1. HERCEPTIN [Suspect]
     Indication: BREAST CANCER METASTATIC
     Dosage: 2L
     Route: 065
  2. PERJETA [Suspect]
     Indication: BREAST CANCER METASTATIC
     Dosage: 3L
     Route: 065
  3. XELODA [Suspect]
     Indication: BREAST CANCER METASTATIC
     Dosage: 1L
     Route: 065

REACTIONS (2)
  - Cardiotoxicity [Unknown]
  - Performance status decreased [Unknown]
